FAERS Safety Report 23789288 (Version 1)
Quarter: 2024Q2

REPORT INFORMATION
  Report Type: Report from Study
  Country: ES (occurrence: ES)
  Receive Date: 20240426
  Receipt Date: 20240426
  Transmission Date: 20240716
  Serious: Yes (Disabling)
  Sender: FDA-Public Use
  Company Number: ES-TEVA-VS-3185651

PATIENT
  Age: 59 Year
  Sex: Female

DRUGS (5)
  1. TERIPARATIDE [Suspect]
     Active Substance: TERIPARATIDE
     Indication: Osteoporosis
     Dosage: 20MCG/80MCL
     Route: 065
     Dates: start: 20240409
  2. NEXIUM [Concomitant]
     Active Substance: ESOMEPRAZOLE MAGNESIUM
     Indication: Hiatus hernia
     Dosage: DOSAGE: 1-0-1; START DATE: A LONG TIME AGO; END DATE ONGOING
     Route: 065
  3. DIOVAN [Concomitant]
     Active Substance: VALSARTAN
     Indication: Hypertension
     Dosage: DOSAGE: 1-0-1; START DATE: A LONG TIME AGO; END DATE ONGOING
     Route: 065
  4. Sotapor 80 [Concomitant]
     Indication: Cardiac disorder
     Dosage: DOSAGE: 1-0-1; START DATE: A LONG TIME AGO; END DATE ONGOING
     Route: 065
  5. LORAZEPAM [Concomitant]
     Active Substance: LORAZEPAM
     Indication: Anxiety
     Dosage: DOSAGE: 1-0-1; START DATE: A LONG TIME AGO; END DATE ONGOING
     Route: 065

REACTIONS (3)
  - Polyuria [Not Recovered/Not Resolved]
  - Palpitations [Not Recovered/Not Resolved]
  - Injection site haematoma [Not Recovered/Not Resolved]

NARRATIVE: CASE EVENT DATE: 20240401
